FAERS Safety Report 24254082 (Version 1)
Quarter: 2024Q3

REPORT INFORMATION
  Report Type: Spontaneous
  Country: CN (occurrence: CN)
  Receive Date: 20240827
  Receipt Date: 20240827
  Transmission Date: 20241017
  Serious: Yes (Life-Threatening)
  Sender: PFIZER
  Company Number: CN-PFIZER INC-PV202400110013

PATIENT
  Age: 67 Year
  Sex: Female

DRUGS (1)
  1. SUTENT [Suspect]
     Active Substance: SUNITINIB MALATE
     Indication: Malignant mesenteric neoplasm
     Dosage: 37.5 MG, 1X/DAY
     Route: 048
     Dates: start: 20240702, end: 20240807

REACTIONS (2)
  - Granulocyte count decreased [Unknown]
  - Off label use [Unknown]

NARRATIVE: CASE EVENT DATE: 20240702
